FAERS Safety Report 23947218 (Version 1)
Quarter: 2024Q2

REPORT INFORMATION
  Report Type: Spontaneous
  Country: US (occurrence: US)
  Receive Date: 20240606
  Receipt Date: 20240606
  Transmission Date: 20240716
  Serious: Yes (Life-Threatening, Hospitalization, Other)
  Sender: FDA-Public Use
  Company Number: US-ARGENX-2024-ARGX-US004061

PATIENT

DRUGS (2)
  1. VYVGART [Suspect]
     Active Substance: EFGARTIGIMOD ALFA-FCAB
     Indication: Myasthenia gravis
     Dosage: UNK
     Route: 042
     Dates: start: 202311
  2. PREDNISONE [Suspect]
     Active Substance: PREDNISONE
     Indication: Product used for unknown indication
     Dosage: UNK
     Route: 065

REACTIONS (11)
  - Dependence on respirator [Unknown]
  - Hospitalisation [Unknown]
  - Myasthenia gravis [Not Recovered/Not Resolved]
  - Finger amputation [Unknown]
  - Adverse drug reaction [Unknown]
  - Drug interaction [Unknown]
  - Scoliosis [Unknown]
  - Sleep apnoea syndrome [Unknown]
  - Ill-defined disorder [Unknown]
  - Walking aid user [Unknown]
  - Therapeutic product effect incomplete [Unknown]
